FAERS Safety Report 12272084 (Version 1)
Quarter: 2016Q2

REPORT INFORMATION
  Report Type: Spontaneous
  Country: US (occurrence: US)
  Receive Date: 20160415
  Receipt Date: 20160415
  Transmission Date: 20160815
  Serious: No
  Sender: FDA-Public Use
  Company Number: US-FERRINGPH-2015FE04919

PATIENT
  Age: 73 Year
  Sex: Male
  Weight: 108.84 kg

DRUGS (5)
  1. MELOXICAM. [Concomitant]
     Active Substance: MELOXICAM
  2. METFORMIN [Concomitant]
     Active Substance: METFORMIN HYDROCHLORIDE
  3. FIRMAGON [Suspect]
     Active Substance: DEGARELIX ACETATE
     Indication: PROSTATE CANCER
     Dosage: 120 MG SQ IN RIGHT ABDOMEN AND 120 MG SQ IN LEFT ABDOMEN, ONCE/SINGLE
     Route: 058
     Dates: start: 20151117, end: 20151117
  4. TAMSULOSIN [Concomitant]
     Active Substance: TAMSULOSIN
  5. MULTIVITAMIN [Concomitant]
     Active Substance: VITAMINS

REACTIONS (2)
  - Skin haemorrhage [Recovered/Resolved]
  - Rash [Recovered/Resolved]

NARRATIVE: CASE EVENT DATE: 201511
